FAERS Safety Report 4426168-9 (Version None)
Quarter: 2004Q3

REPORT INFORMATION
  Report Type: 
  Country: None (occurrence: None)
  Receive Date: 20040811
  Receipt Date: 20040727
  Transmission Date: 20050211
  Serious: No
  Sender: FDA-Public Use
  Company Number: USA040155937

PATIENT
  Age: 88 Year
  Sex: Female

DRUGS (4)
  1. FORTEO [Suspect]
     Indication: BONE DENSITY DECREASED
     Dates: start: 20031001
  2. CALCIUM [Concomitant]
  3. MULTI-VITAMINS [Concomitant]
  4. FOSAMAX [Concomitant]

REACTIONS (8)
  - CONJUNCTIVAL HAEMORRHAGE [None]
  - DIZZINESS [None]
  - DRY MOUTH [None]
  - EYE REDNESS [None]
  - GASTROOESOPHAGEAL REFLUX DISEASE [None]
  - INJECTION SITE HAEMORRHAGE [None]
  - NAUSEA [None]
  - TONGUE DISORDER [None]
